FAERS Safety Report 18311469 (Version 1)
Quarter: 2020Q3

REPORT INFORMATION
  Report Type: Spontaneous
  Country: US (occurrence: US)
  Receive Date: 20200924
  Receipt Date: 20200924
  Transmission Date: 20201103
  Serious: No
  Sender: FDA-Public Use
  Company Number: None

PATIENT
  Age: 58 Year
  Sex: Female
  Weight: 95.85 kg

DRUGS (6)
  1. C [Concomitant]
  2. ISOSORBIDE MONONITRATE 30 MG ER TABS [Suspect]
     Active Substance: ISOSORBIDE MONONITRATE
     Indication: CHEST PAIN
     Dosage: ?          QUANTITY:1 TABLET(S);?
     Dates: start: 20200923, end: 20200924
  3. E [Concomitant]
  4. D [Concomitant]
  5. ISOSORBIDE MONONITRATE 30 MG ER TABS [Suspect]
     Active Substance: ISOSORBIDE MONONITRATE
     Indication: DYSPNOEA
     Dosage: ?          QUANTITY:1 TABLET(S);?
     Dates: start: 20200923, end: 20200924
  6. ZINC. [Concomitant]
     Active Substance: ZINC

REACTIONS (5)
  - Neck pain [None]
  - Feeling abnormal [None]
  - Nausea [None]
  - Migraine [None]
  - Headache [None]

NARRATIVE: CASE EVENT DATE: 20200923
